FAERS Safety Report 15430483 (Version 3)
Quarter: 2018Q4

REPORT INFORMATION
  Report Type: Report from Study
  Country: NL (occurrence: NL)
  Receive Date: 20180926
  Receipt Date: 20181024
  Transmission Date: 20190204
  Serious: Yes (Other)
  Sender: FDA-Public Use
  Company Number: NL-JNJFOC-20180924204

PATIENT
  Age: 51 Year
  Sex: Male
  Weight: 102 kg

DRUGS (2)
  1. TACLONEX [Concomitant]
     Active Substance: BETAMETHASONE DIPROPIONATE\CALCIPOTRIENE\CALCIPOTRIENE HYDRATE
     Route: 065
  2. STELARA [Suspect]
     Active Substance: USTEKINUMAB
     Indication: PSORIASIS
     Route: 058
     Dates: start: 201103

REACTIONS (1)
  - Lacunar infarction [Recovered/Resolved with Sequelae]

NARRATIVE: CASE EVENT DATE: 201804
